FAERS Safety Report 16535362 (Version 2)
Quarter: 2019Q4

REPORT INFORMATION
  Report Type: Spontaneous
  Country: US (occurrence: US)
  Receive Date: 20190705
  Receipt Date: 20191002
  Transmission Date: 20200122
  Serious: No
  Sender: FDA-Public Use
  Company Number: US-GW PHARMA-201906USGW2134

PATIENT

DRUGS (3)
  1. EPIDIOLEX [Suspect]
     Active Substance: CANNABIDIOL
     Indication: LENNOX-GASTAUT SYNDROME
     Dosage: 60 MILLIGRAM, BID
     Route: 048
     Dates: start: 20190126, end: 201906
  2. EPIDIOLEX [Suspect]
     Active Substance: CANNABIDIOL
     Dosage: 240 MILLIGRAM, BID
     Route: 048
     Dates: start: 201906, end: 2019
  3. EPIDIOLEX [Suspect]
     Active Substance: CANNABIDIOL
     Dosage: UNK, DOSE INCREASED
     Route: 048
     Dates: start: 2019

REACTIONS (2)
  - Seizure [Not Recovered/Not Resolved]
  - Seizure [Recovered/Resolved]

NARRATIVE: CASE EVENT DATE: 2019
